FAERS Safety Report 6285444-8 (Version None)
Quarter: 2009Q3

REPORT INFORMATION
  Report Type: 
  Country: None (occurrence: None)
  Receive Date: 20090727
  Receipt Date: 20090713
  Transmission Date: 20100115
  Serious: Yes (Other)
  Sender: FDA-Public Use
  Company Number: TR-MYLANLABS-2009S1012272

PATIENT
  Age: 54 Year
  Sex: Female

DRUGS (2)
  1. FLUVOXAMINE MALEATE [Suspect]
     Indication: MAJOR DEPRESSION
     Dosage: 50 MG/DAY
  2. FLUVOXAMINE MALEATE [Suspect]
     Dosage: 100 MG/DAY

REACTIONS (2)
  - DEAFNESS [None]
  - TINNITUS [None]
